FAERS Safety Report 8301661-7 (Version None)
Quarter: 2012Q2

REPORT INFORMATION
  Report Type: 
  Country: None (occurrence: None)
  Receive Date: 20120418
  Receipt Date: 20120418
  Transmission Date: 20120825
  Serious: Yes (Other)
  Sender: FDA-Public Use
  Company Number: None

PATIENT
  Age: 44 Year
  Sex: Female

DRUGS (2)
  1. CITALOPRAM HYDROBROMIDE [Suspect]
     Indication: DEPRESSION
  2. PRILOSEC OTC [Suspect]
     Indication: DYSPEPSIA

REACTIONS (6)
  - NAUSEA [None]
  - MALAISE [None]
  - HEART RATE IRREGULAR [None]
  - ASTHENIA [None]
  - DIARRHOEA [None]
  - DIZZINESS [None]
